FAERS Safety Report 6966878-2 (Version None)
Quarter: 2010Q3

REPORT INFORMATION
  Report Type: 
  Country: None (occurrence: None)
  Receive Date: 20100906
  Receipt Date: 20100813
  Transmission Date: 20110219
  Serious: Yes (Death, Hospitalization, Other)
  Sender: FDA-Public Use
  Company Number: PHEH2006US12725

PATIENT
  Sex: Male
  Weight: 56.93 kg

DRUGS (34)
  1. ZOMETA [Suspect]
     Indication: BONE DENSITY DECREASED
     Dosage: 4 MG 100 ML
     Route: 042
     Dates: start: 20040316, end: 20060307
  2. AREDIA [Suspect]
     Dosage: 90 MG, UNK
     Dates: start: 20040120, end: 20040217
  3. SELENIUM [Concomitant]
  4. VITAMIN E [Concomitant]
  5. TOPRAL [Concomitant]
  6. COUMADIN [Concomitant]
  7. VIOXX [Concomitant]
  8. ARANESP [Concomitant]
  9. TAXOTERE [Concomitant]
     Dosage: 120 MG / 250 ML
     Route: 042
  10. PREDNISONE [Concomitant]
  11. CASODEX [Concomitant]
  12. RADIATION THERAPY [Concomitant]
     Dosage: UNK
     Dates: start: 20070301, end: 20070501
  13. METOPROLOL TARTRATE [Concomitant]
  14. PRILOSEC [Concomitant]
  15. DIGOXIN [Concomitant]
  16. NEURONTIN [Concomitant]
  17. ROCEPHIN [Concomitant]
     Dosage: 2 GM /100 ML
     Route: 042
  18. CIPRO [Concomitant]
  19. LEVAQUIN [Concomitant]
  20. DEXAMETHASONE [Concomitant]
  21. DIGITEK [Concomitant]
  22. OXYBUTYNIN [Concomitant]
  23. LASIX [Concomitant]
  24. VITAMIN D [Concomitant]
  25. COZAAR [Concomitant]
  26. FLUMED [Concomitant]
  27. NILANDRON [Concomitant]
  28. FLUTAMIDE [Concomitant]
  29. TOPROL-XL [Concomitant]
  30. DYAZIDE [Concomitant]
  31. MIRALAX [Concomitant]
  32. DEMEROL [Concomitant]
     Dosage: 25 MG, UNK
     Route: 042
  33. GABAPENTIN [Concomitant]
     Indication: PARAESTHESIA
     Dosage: 100 MG, TID
  34. OMEPRAZOLE [Concomitant]

REACTIONS (74)
  - ACUTE SINUSITIS [None]
  - ANAEMIA [None]
  - ANXIETY [None]
  - AORTIC ANEURYSM [None]
  - ATELECTASIS [None]
  - ATRIAL FIBRILLATION [None]
  - ATRIAL FLUTTER [None]
  - ATRIAL TACHYCARDIA [None]
  - BACK PAIN [None]
  - BASAL GANGLION DEGENERATION [None]
  - BLOOD CALCIUM DECREASED [None]
  - BLOOD CHLORIDE INCREASED [None]
  - BLOOD CREATININE INCREASED [None]
  - BLOOD PRESSURE DECREASED [None]
  - BLOOD PRESSURE INCREASED [None]
  - BLOOD PRESSURE SYSTOLIC INCREASED [None]
  - BLOOD UREA INCREASED [None]
  - BONE DISORDER [None]
  - CAROTID ARTERY DISEASE [None]
  - CAROTID BRUIT [None]
  - CEREBROVASCULAR ACCIDENT [None]
  - CHOLELITHIASIS [None]
  - COLON POLYPECTOMY [None]
  - COLONIC POLYP [None]
  - CONJUNCTIVAL HAEMORRHAGE [None]
  - DEAFNESS [None]
  - DEATH [None]
  - DEHYDRATION [None]
  - ESSENTIAL HYPERTENSION [None]
  - GINGIVAL RECESSION [None]
  - HAEMATOCRIT DECREASED [None]
  - HAEMOGLOBIN DECREASED [None]
  - INJURY [None]
  - LUNG DISORDER [None]
  - LYMPHOCYTE COUNT DECREASED [None]
  - MALIGNANT NEOPLASM PROGRESSION [None]
  - MASTICATION DISORDER [None]
  - MEAN CELL HAEMOGLOBIN CONCENTRATION DECREASED [None]
  - MEAN CELL HAEMOGLOBIN DECREASED [None]
  - MEAN CELL VOLUME INCREASED [None]
  - MITRAL VALVE INCOMPETENCE [None]
  - MUSCULOSKELETAL STIFFNESS [None]
  - MYELODYSPLASTIC SYNDROME [None]
  - NEUROPATHY PERIPHERAL [None]
  - NEUROSENSORY HYPOACUSIS [None]
  - NODULE [None]
  - OEDEMA PERIPHERAL [None]
  - OSTEONECROSIS OF JAW [None]
  - PAIN [None]
  - PANCYTOPENIA [None]
  - PARAESTHESIA [None]
  - PHYSICAL DISABILITY [None]
  - PROTEIN TOTAL DECREASED [None]
  - PULMONARY FIBROSIS [None]
  - RED BLOOD CELL COUNT DECREASED [None]
  - RED CELL DISTRIBUTION WIDTH INCREASED [None]
  - RENAL CYST [None]
  - RENAL FAILURE CHRONIC [None]
  - RETROPERITONEAL LYMPHADENOPATHY [None]
  - RHEUMATOID ARTHRITIS [None]
  - SINUS BRADYCARDIA [None]
  - SPINAL OSTEOARTHRITIS [None]
  - STOMATITIS [None]
  - SUBDURAL HAEMATOMA [None]
  - SYNCOPE [None]
  - TOOTH ABSCESS [None]
  - TOOTH EXTRACTION [None]
  - TOOTH FRACTURE [None]
  - TOOTHACHE [None]
  - TREMOR [None]
  - TRICUSPID VALVE INCOMPETENCE [None]
  - URINARY TRACT INFECTION [None]
  - VENTRICULAR EXTRASYSTOLES [None]
  - WHITE BLOOD CELL COUNT DECREASED [None]
